FAERS Safety Report 8469357-9 (Version None)
Quarter: 2012Q2

REPORT INFORMATION
  Report Type: 
  Country: None (occurrence: None)
  Receive Date: 20120621
  Receipt Date: 20120621
  Transmission Date: 20120825
  Serious: No
  Sender: FDA-Public Use
  Company Number: None

PATIENT
  Age: 59 Year
  Sex: Female
  Weight: 72.5755 kg

DRUGS (4)
  1. LIPITOR [Suspect]
     Indication: BLOOD CHOLESTEROL INCREASED
     Dosage: 1 - 10MG. NIGHTLY
     Dates: start: 20120207, end: 20120501
  2. ASPIRIN [Concomitant]
  3. MULTI-VITAMIN [Concomitant]
  4. FISH OIL [Concomitant]

REACTIONS (18)
  - PRURITUS [None]
  - OEDEMA PERIPHERAL [None]
  - HYPOAESTHESIA [None]
  - OROPHARYNGEAL PAIN [None]
  - CHROMATURIA [None]
  - PYREXIA [None]
  - SPIDER VEIN [None]
  - HEADACHE [None]
  - TENDON PAIN [None]
  - ASTHENIA [None]
  - SKIN DISCOLOURATION [None]
  - THROAT TIGHTNESS [None]
  - MUSCLE SPASMS [None]
  - ABASIA [None]
  - SWELLING [None]
  - MYALGIA [None]
  - BONE PAIN [None]
  - FAECES DISCOLOURED [None]
